FAERS Safety Report 10146146 (Version 3)
Quarter: 2014Q2

REPORT INFORMATION
  Report Type: Spontaneous
  Country: JP (occurrence: JP)
  Receive Date: 20140501
  Receipt Date: 20140620
  Transmission Date: 20141212
  Serious: Yes (Other)
  Sender: FDA-Public Use
  Company Number: JP-009507513-1404JPN015263

PATIENT
  Age: 47 Year
  Sex: Female

DRUGS (2)
  1. TAPROS [Suspect]
     Indication: OPEN ANGLE GLAUCOMA
     Dosage: 2 GTT, SINGLE/DAY
     Route: 047
     Dates: start: 20120824
  2. LIVOSTIN [Concomitant]
     Dosage: UNK
     Dates: end: 20120510

REACTIONS (1)
  - Gastric cancer [Unknown]
